FAERS Safety Report 13855270 (Version 2)
Quarter: 2017Q3

REPORT INFORMATION
  Report Type: Spontaneous
  Country: US (occurrence: US)
  Receive Date: 20170810
  Receipt Date: 20170906
  Transmission Date: 20171127
  Serious: No
  Sender: FDA-Public Use
  Company Number: US-TEIKOKU PHARMA USA-TPU2017-00362

PATIENT
  Sex: Male
  Weight: 92.16 kg

DRUGS (9)
  1. LIDOCAINE PATCH [Suspect]
     Active Substance: LIDOCAINE
     Indication: NEURALGIA
  2. LIDODERM [Concomitant]
     Active Substance: LIDOCAINE
     Indication: PROCEDURAL PAIN
  3. LIDOCAINE PATCH [Suspect]
     Active Substance: LIDOCAINE
     Indication: FRACTURE PAIN
     Dosage: APPLY 1 TO 3 PATCHES TO THE HIP 12 HOURS ON 12 HOURS OFF
     Dates: start: 1997
  4. VITAMINS [Concomitant]
     Active Substance: VITAMINS
  5. LIDOCAINE PATCH [Suspect]
     Active Substance: LIDOCAINE
     Indication: PROCEDURAL PAIN
  6. LIPITOR [Concomitant]
     Active Substance: ATORVASTATIN CALCIUM
  7. STOMACH MEDICINE [Concomitant]
  8. LIDODERM [Concomitant]
     Active Substance: LIDOCAINE
     Indication: FRACTURE PAIN
     Dosage: APPLY 1 TO 3 PATCHES TO THE HIP 12 HOURS ON 12 HOURS OFF
     Dates: start: 1997
  9. OXYCODONE [Concomitant]
     Active Substance: OXYCODONE
     Indication: PAIN
     Dosage: 10 MG BY MOUTH EVERY 4 HOURS AS NEEDED FOR PAIN
     Route: 048
     Dates: start: 2012

REACTIONS (1)
  - Drug ineffective for unapproved indication [Unknown]
